FAERS Safety Report 17677316 (Version 1)
Quarter: 2020Q2

REPORT INFORMATION
  Report Type: Spontaneous
  Country: US (occurrence: US)
  Receive Date: 20200415
  Receipt Date: 20200415
  Transmission Date: 20200714
  Serious: Yes (Other)
  Sender: FDA-Public Use
  Company Number: None

PATIENT
  Age: 32 Year
  Sex: Male

DRUGS (3)
  1. LURASIDONE (LURASIDONE HCL 40MG TAB) [Suspect]
     Active Substance: LURASIDONE HYDROCHLORIDE
     Indication: GENERALISED ANXIETY DISORDER
     Route: 048
     Dates: start: 20180910, end: 20180924
  2. LURASIDONE (LURASIDONE HCL 40MG TAB) [Suspect]
     Active Substance: LURASIDONE HYDROCHLORIDE
     Indication: DEPRESSION
     Route: 048
     Dates: start: 20180910, end: 20180924
  3. LURASIDONE (LURASIDONE HCL 40MG TAB) [Suspect]
     Active Substance: LURASIDONE HYDROCHLORIDE
     Indication: MENTAL DISORDER
     Route: 048
     Dates: start: 20180910, end: 20180924

REACTIONS (5)
  - Nephritis [None]
  - Acute kidney injury [None]
  - Drug hypersensitivity [None]
  - Dialysis [None]
  - Nephropathy toxic [None]

NARRATIVE: CASE EVENT DATE: 20190108
